FAERS Safety Report 5369940-3 (Version None)
Quarter: 2007Q2

REPORT INFORMATION
  Report Type: 
  Country: None (occurrence: None)
  Receive Date: 20070621
  Receipt Date: 20070607
  Transmission Date: 20071010
  Serious: Yes (Other)
  Sender: FDA-Public Use
  Company Number: 02100-JPN-07-0212

PATIENT
  Age: 67 Year
  Sex: Male

DRUGS (4)
  1. CILOSTAZOL [Suspect]
     Indication: CEREBRAL INFARCTION
     Dosage: 200 MG, ORAL
     Route: 048
     Dates: start: 20060906, end: 20070419
  2. SIMVASTATIN [Suspect]
     Dosage: ORAL
     Route: 048
     Dates: end: 20070323
  3. CANDESARTAN CILEXETIL [Suspect]
     Dosage: ORAL
     Route: 048
     Dates: end: 20070419
  4. AMLODIPINE BESYLATE [Suspect]
     Dosage: ORAL
     Route: 048
     Dates: end: 20070419

REACTIONS (2)
  - CEREBRAL INFARCTION [None]
  - RHABDOMYOLYSIS [None]
